FAERS Safety Report 17506359 (Version 1)
Quarter: 2020Q1

REPORT INFORMATION
  Report Type: Spontaneous
  Country: US (occurrence: US)
  Receive Date: 20200306
  Receipt Date: 20200306
  Transmission Date: 20200409
  Serious: Yes (Hospitalization, Other)
  Sender: FDA-Public Use
  Company Number: US-PACIRA-202000058

PATIENT

DRUGS (1)
  1. EXPAREL [Suspect]
     Active Substance: BUPIVACAINE
     Indication: NERVE BLOCK
     Dosage: 266MG (20ML VIAL DILUTED WITH SALINE) AT LEAST 5ML PER INTERCOSTAL SPACE

REACTIONS (2)
  - Pulmonary embolism [Unknown]
  - Endotracheal intubation [Unknown]
